FAERS Safety Report 18006967 (Version 1)
Quarter: 2020Q3

REPORT INFORMATION
  Report Type: Spontaneous
  Country: US (occurrence: US)
  Receive Date: 20200710
  Receipt Date: 20200710
  Transmission Date: 20201103
  Serious: Yes (Other)
  Sender: FDA-Public Use
  Company Number: None

PATIENT
  Age: 73 Year
  Sex: Male
  Weight: 106 kg

DRUGS (12)
  1. PROPOFOL. [Concomitant]
     Active Substance: PROPOFOL
  2. AMIODARONE IV [Concomitant]
  3. NOREPINEPHRINE. [Concomitant]
     Active Substance: NOREPINEPHRINE
  4. REMDESIVIR. [Suspect]
     Active Substance: REMDESIVIR
     Indication: COVID-19
     Route: 042
  5. PHENYLEPHRINE IV [Concomitant]
  6. VECURONIUM [Concomitant]
     Active Substance: VECURONIUM BROMIDE
  7. PANTOPRAZOLE [Concomitant]
     Active Substance: PANTOPRAZOLE
  8. DEXAMETHASONE IV [Concomitant]
     Active Substance: DEXAMETHASONE
  9. MIDAZOLAM IV [Concomitant]
  10. CEFTRIAXONE. [Concomitant]
     Active Substance: CEFTRIAXONE
  11. VASOPRESSIN. [Concomitant]
     Active Substance: VASOPRESSIN
  12. ENOXAPARIN [Concomitant]
     Active Substance: ENOXAPARIN

REACTIONS (1)
  - Glomerular filtration rate decreased [None]

NARRATIVE: CASE EVENT DATE: 20200703
